FAERS Safety Report 6017132-7 (Version None)
Quarter: 2008Q4

REPORT INFORMATION
  Report Type: 
  Country: None (occurrence: None)
  Receive Date: 20081223
  Receipt Date: 20081215
  Transmission Date: 20090506
  Serious: Yes (Death, Hospitalization)
  Sender: FDA-Public Use
  Company Number: FR-ROCHE-558003

PATIENT
  Sex: Female

DRUGS (12)
  1. ROCEPHIN [Suspect]
     Indication: DRUG USE FOR UNKNOWN INDICATION
     Dosage: FORM: INJECTABLE SOLUTION
     Route: 042
     Dates: start: 20070906, end: 20080106
  2. FENOFIBRATE [Suspect]
     Indication: DRUG USE FOR UNKNOWN INDICATION
     Route: 048
     Dates: end: 20080106
  3. FLAGYL [Suspect]
     Indication: DRUG USE FOR UNKNOWN INDICATION
     Dosage: FORM: INJECTABLE SOLUTION
     Route: 042
     Dates: start: 20070906, end: 20080106
  4. HEPARIN [Suspect]
     Indication: DRUG USE FOR UNKNOWN INDICATION
     Route: 042
     Dates: start: 20070908, end: 20070914
  5. HEPARIN [Suspect]
     Route: 042
     Dates: start: 20070918, end: 20080106
  6. PREVISCAN [Suspect]
     Indication: DRUG USE FOR UNKNOWN INDICATION
     Dosage: 1 TABLET 5 DAYS PER WEEK AND 3/4TH TABLET 2 DAYS PER WEEK
     Route: 048
  7. PREVISCAN [Suspect]
     Route: 048
     Dates: start: 20070912, end: 20070916
  8. AMLOD [Concomitant]
  9. FUROSEMIDE [Concomitant]
  10. MICARDIS [Concomitant]
  11. MODURETIC 5-50 [Concomitant]
  12. INSULATARD [Concomitant]

REACTIONS (3)
  - BLISTER [None]
  - DEATH [None]
  - SKIN HAEMORRHAGE [None]
